FAERS Safety Report 16729210 (Version 1)
Quarter: 2019Q3

REPORT INFORMATION
  Report Type: Report from Study
  Country: CN (occurrence: CN)
  Receive Date: 20190822
  Receipt Date: 20190822
  Transmission Date: 20191005
  Serious: Yes (Life-Threatening)
  Sender: FDA-Public Use
  Company Number: CN-JNJFOC-20190817182

PATIENT
  Age: 62 Year
  Sex: Male
  Weight: 47 kg

DRUGS (10)
  1. MECOBALAMIN [Concomitant]
     Active Substance: METHYLCOBALAMIN
     Indication: PRODUCT USED FOR UNKNOWN INDICATION
     Route: 065
     Dates: start: 20190222, end: 20190311
  2. CYCLOSERINE. [Suspect]
     Active Substance: CYCLOSERINE
     Indication: TUBERCULOSIS
     Route: 048
     Dates: start: 20190225
  3. LINEZOLID. [Suspect]
     Active Substance: LINEZOLID
     Indication: TUBERCULOSIS
     Route: 048
     Dates: start: 20190225, end: 20190309
  4. AMOXICILLIN AND CLAVULANATE POTASSIUM [Suspect]
     Active Substance: AMOXICILLIN\CLAVULANATE POTASSIUM
     Indication: TUBERCULOSIS
     Route: 048
     Dates: start: 20190225
  5. VITAMIN B6 [Concomitant]
     Active Substance: PYRIDOXINE HYDROCHLORIDE
     Indication: PRODUCT USED FOR UNKNOWN INDICATION
     Route: 065
     Dates: start: 20190222, end: 20190311
  6. REDUCED GLUTATHIONE SODIUM [Concomitant]
     Active Substance: GLUTATHIONE
     Indication: PRODUCT USED FOR UNKNOWN INDICATION
     Route: 065
     Dates: start: 20190222, end: 20190311
  7. PYRAZINAMIDE. [Suspect]
     Active Substance: PYRAZINAMIDE
     Indication: TUBERCULOSIS
     Route: 048
     Dates: start: 20190225
  8. BEDAQUILINE [Suspect]
     Active Substance: BEDAQUILINE
     Indication: TUBERCULOSIS
     Route: 048
     Dates: start: 20190225, end: 20190311
  9. BEDAQUILINE [Suspect]
     Active Substance: BEDAQUILINE
     Route: 048
     Dates: start: 20190311, end: 20190520
  10. DIAMMONIUM GLYCYRRHIZINATE [Concomitant]
     Active Substance: HERBALS\DIAMMONIUM GLYCYRRHIZINATE
     Indication: PRODUCT USED FOR UNKNOWN INDICATION
     Route: 065
     Dates: start: 20190222, end: 20190311

REACTIONS (1)
  - Electrocardiogram QT prolonged [Recovering/Resolving]

NARRATIVE: CASE EVENT DATE: 20190520
